FAERS Safety Report 24276104 (Version 2)
Quarter: 2024Q3

REPORT INFORMATION
  Report Type: Spontaneous
  Country: BR (occurrence: BR)
  Receive Date: 20240903
  Receipt Date: 20240911
  Transmission Date: 20241017
  Serious: Yes (Hospitalization, Other)
  Sender: CELLTRION
  Company Number: BR-CELLTRION INC.-2023BR003235

PATIENT

DRUGS (2)
  1. INFLIXIMAB [Suspect]
     Active Substance: INFLIXIMAB
     Indication: Crohn^s disease
     Dosage: 2 AMPOULES OF 100MG EVERY 8 WEEKS/2 MONTHS
     Route: 042
     Dates: start: 20220826
  2. INFLIXIMAB [Suspect]
     Active Substance: INFLIXIMAB
     Dosage: 2 AMPOULES OF 100 MG EACH (200 MG TOTAL) EVERY 2 MONTHS
     Route: 042
     Dates: start: 20240821

REACTIONS (4)
  - Ileostomy closure [Unknown]
  - Poor venous access [Unknown]
  - Intentional dose omission [Unknown]
  - Underdose [Unknown]

NARRATIVE: CASE EVENT DATE: 20240719
